FAERS Safety Report 25779492 (Version 1)
Quarter: 2025Q3

REPORT INFORMATION
  Report Type: Report from Study
  Country: CA (occurrence: CA)
  Receive Date: 20250909
  Receipt Date: 20250909
  Transmission Date: 20251021
  Serious: Yes (Hospitalization, Other)
  Sender: IPSEN BIOPHARMACEUTICALS, INC.
  Company Number: CA-IPSEN Group, Research and Development-2025-17161

PATIENT
  Age: 68 Year
  Sex: Female

DRUGS (3)
  1. LANREOTIDE ACETATE [Suspect]
     Active Substance: LANREOTIDE ACETATE
     Indication: Gastroenteropancreatic neuroendocrine tumour disease
     Dosage: DEEP SUBCUTANEOUS
     Route: 058
  2. LANREOTIDE ACETATE [Suspect]
     Active Substance: LANREOTIDE ACETATE
     Indication: Carcinoid syndrome
  3. FAMOTIDINE [Concomitant]
     Active Substance: FAMOTIDINE

REACTIONS (6)
  - Intestinal resection [Unknown]
  - Hepatocellular carcinoma [Recovered/Resolved]
  - Peritoneal carcinoma metastatic [Recovered/Resolved]
  - Surgery [Unknown]
  - Faeces soft [Unknown]
  - Abdominal distension [Unknown]

NARRATIVE: CASE EVENT DATE: 20250701
